FAERS Safety Report 10308559 (Version 2)
Quarter: 2014Q3

REPORT INFORMATION
  Report Type: Spontaneous
  Country: US (occurrence: US)
  Receive Date: 20140716
  Receipt Date: 20140819
  Transmission Date: 20150326
  Serious: Yes (Hospitalization)
  Sender: FDA-Public Use
  Company Number: US-GLAXOSMITHKLINE-A1080742A

PATIENT
  Sex: Female

DRUGS (7)
  1. VENTOLIN [Suspect]
     Active Substance: ALBUTEROL SULFATE
     Indication: CHRONIC OBSTRUCTIVE PULMONARY DISEASE
     Dosage: 2PUFF FIVE TIMES PER DAY
     Route: 055
     Dates: start: 2014
  2. SPIRIVA [Concomitant]
     Active Substance: TIOTROPIUM BROMIDE MONOHYDRATE
  3. PROVENTIL [Concomitant]
     Active Substance: ALBUTEROL
  4. PROAIR HFA [Suspect]
     Active Substance: ALBUTEROL SULFATE
     Indication: CHRONIC OBSTRUCTIVE PULMONARY DISEASE
     Dosage: 2PUFF FIVE TIMES PER DAY
     Route: 055
     Dates: start: 2010, end: 201403
  5. ADVAIR HFA [Suspect]
     Active Substance: FLUTICASONE PROPIONATE\SALMETEROL XINAFOATE
     Indication: CHRONIC OBSTRUCTIVE PULMONARY DISEASE
     Dosage: 1PUFF TWICE PER DAY
     Route: 055
     Dates: start: 2010
  6. ALBUTEROL. [Suspect]
     Active Substance: ALBUTEROL
     Indication: CHRONIC OBSTRUCTIVE PULMONARY DISEASE
     Route: 055
     Dates: start: 2010, end: 2014
  7. ALPRAZOLAM. [Concomitant]
     Active Substance: ALPRAZOLAM

REACTIONS (10)
  - Panic reaction [Recovering/Resolving]
  - Malaise [Recovering/Resolving]
  - Wheezing [Recovering/Resolving]
  - Drug dose omission [Unknown]
  - Cardiac arrest [Recovering/Resolving]
  - Heart rate increased [Recovering/Resolving]
  - Overdose [Unknown]
  - Pneumonia [Recovering/Resolving]
  - Dyspnoea [Recovering/Resolving]
  - Panic attack [Recovering/Resolving]

NARRATIVE: CASE EVENT DATE: 2012
